FAERS Safety Report 16335258 (Version 1)
Quarter: 2019Q2

REPORT INFORMATION
  Report Type: Spontaneous
  Country: US (occurrence: US)
  Receive Date: 20190521
  Receipt Date: 20190521
  Transmission Date: 20190711
  Serious: Yes (Hospitalization)
  Sender: FDA-Public Use
  Company Number: US-SUN PHARMACEUTICAL INDUSTRIES LTD-2018US-190176

PATIENT
  Age: 35 Year
  Sex: Male

DRUGS (2)
  1. CIPROFLOXACIN. [Suspect]
     Active Substance: CIPROFLOXACIN
     Indication: PERIORBITAL CELLULITIS
     Dosage: 400 MILLIGRAM, 1DOSE/12HOUR
     Route: 042
  2. CLINDAMYCIN. [Concomitant]
     Active Substance: CLINDAMYCIN
     Indication: PERIORBITAL CELLULITIS
     Dosage: 600 MILLIGRAM, 1DOSE/8HR
     Route: 042

REACTIONS (1)
  - Drug-induced liver injury [Recovering/Resolving]
